FAERS Safety Report 4811215-2 (Version None)
Quarter: 2005Q4

REPORT INFORMATION
  Report Type: 
  Country: None (occurrence: None)
  Receive Date: 20051027
  Receipt Date: 20010704
  Transmission Date: 20060501
  Serious: Yes (Death, Hospitalization)
  Sender: FDA-Public Use
  Company Number: GB-SOLVAY-00205003334

PATIENT
  Age: 30490 Day
  Sex: Male

DRUGS (6)
  1. OMEPRAZOLE [Concomitant]
     Indication: ILL-DEFINED DISORDER
     Dosage: DAILY DOSE:  UNKNOWN
     Route: 048
     Dates: start: 19960101, end: 20010802
  2. PERINDOPRIL ERBUMINE [Suspect]
     Indication: ILL-DEFINED DISORDER
     Dosage: DAILY DOSE:  UNKNOWN
     Route: 048
     Dates: start: 20000218, end: 20010605
  3. SALBUTAMOL [Concomitant]
     Indication: ILL-DEFINED DISORDER
     Dosage: DAILY DOSE:  UNKNOWN
     Route: 065
     Dates: end: 20010802
  4. ATROVENT [Concomitant]
     Indication: ILL-DEFINED DISORDER
     Dosage: DAILY DOSE:  UNKNOWN
     Route: 065
     Dates: end: 20010802
  5. FUROSEMIDE [Concomitant]
     Indication: ILL-DEFINED DISORDER
     Dosage: DAILY DOSE:  UNKNOWN
     Route: 065
     Dates: end: 20010802
  6. BECOTIDE [Concomitant]
     Indication: ILL-DEFINED DISORDER
     Dosage: DAILY DOSE:  UNKNOWN
     Route: 065
     Dates: end: 20010802

REACTIONS (6)
  - ANAEMIA [None]
  - ASCITES [None]
  - GENERAL PHYSICAL HEALTH DETERIORATION [None]
  - LOWER RESPIRATORY TRACT INFECTION [None]
  - METASTATIC NEOPLASM [None]
  - PLEURAL EFFUSION [None]
